FAERS Safety Report 18454782 (Version 1)
Quarter: 2020Q4

REPORT INFORMATION
  Report Type: Spontaneous
  Country: NO (occurrence: NO)
  Receive Date: 20201102
  Receipt Date: 20201102
  Transmission Date: 20210114
  Serious: Yes (Disabling, Other)
  Sender: FDA-Public Use
  Company Number: NO-BAYER-2020-229402

PATIENT
  Age: 29 Year
  Sex: Female
  Weight: 89 kg

DRUGS (5)
  1. JAYDESS [Suspect]
     Active Substance: LEVONORGESTREL
     Indication: CONTRACEPTION
     Dosage: 14 ?G PER DAY, CONTINUOUSLY
     Route: 015
     Dates: start: 20151115, end: 20190606
  2. IBUX [Concomitant]
     Active Substance: IBUPROFEN
     Dates: start: 20151115, end: 20201013
  3. VITAVIT [VITAMIN B COMPLEX] [Concomitant]
  4. PARACET [PARACETAMOL] [Concomitant]
     Dates: start: 20151115, end: 20201013
  5. ASCORBIC ACID. [Concomitant]
     Active Substance: ASCORBIC ACID

REACTIONS (3)
  - Myalgia [Recovered/Resolved with Sequelae]
  - Joint lock [Recovering/Resolving]
  - Dysmenorrhoea [Recovered/Resolved]

NARRATIVE: CASE EVENT DATE: 20151116
